FAERS Safety Report 15821273 (Version 1)
Quarter: 2019Q1

REPORT INFORMATION
  Report Type: Other
  Country: JP (occurrence: JP)
  Receive Date: 20190114
  Receipt Date: 20190114
  Transmission Date: 20190417
  Serious: Yes (Other)
  Sender: FDA-Public Use
  Company Number: JP-EMD SERONO-230001L08JPN

PATIENT
  Age: 52 Year
  Sex: Female

DRUGS (1)
  1. INTERFERON BETA NOS [Suspect]
     Active Substance: INTERFERON BETA
     Route: 042

REACTIONS (4)
  - Altered state of consciousness [Recovered/Resolved]
  - Central nervous system vasculitis [Recovered/Resolved]
  - Neurological symptom [Recovered/Resolved]
  - Pyrexia [Unknown]
